FAERS Safety Report 9759629 (Version 1)
Quarter: 2013Q4

REPORT INFORMATION
  Report Type: Spontaneous
  Country: US (occurrence: US)
  Receive Date: 20131216
  Receipt Date: 20131216
  Transmission Date: 20140711
  Serious: No
  Sender: FDA-Public Use
  Company Number: US-GILEAD-2010-0028479

PATIENT
  Sex: Female
  Weight: 99.34 kg

DRUGS (30)
  1. LETAIRIS [Suspect]
     Indication: PULMONARY ARTERIAL HYPERTENSION
     Route: 048
     Dates: start: 20090319
  2. FLEXERIL [Concomitant]
  3. FLECAINIDE [Concomitant]
  4. COUMADIN [Concomitant]
  5. QUINIDINE SULFATE [Concomitant]
  6. HUMALOG [Concomitant]
  7. HUMULIN [Concomitant]
  8. PROTONIX [Concomitant]
  9. ATARAX [Concomitant]
  10. ENALAPRIL [Concomitant]
  11. FLONASE [Concomitant]
  12. HEPARIN [Concomitant]
  13. ACETAMINOPHEN [Concomitant]
  14. NYSTATIN [Concomitant]
  15. MIRALAX [Concomitant]
  16. PROCRIT [Concomitant]
  17. DARVOCET-N [Concomitant]
  18. DEMADEX [Concomitant]
  19. METHOCARBAMOL [Concomitant]
  20. XENADERM [Concomitant]
  21. DIOVAN [Concomitant]
  22. METOLAZONE [Concomitant]
  23. FEXOFENADINE [Concomitant]
  24. ADVAIR [Concomitant]
  25. POTASSIUM CL [Concomitant]
  26. SALINE FLUSH [Concomitant]
  27. HYDROXYZINE [Concomitant]
  28. LANOXIN [Concomitant]
  29. GLUCAGON [Concomitant]
  30. D-50 AND D-10 [Concomitant]

REACTIONS (1)
  - Stomatitis [Unknown]
